FAERS Safety Report 7460443-9 (Version None)
Quarter: 2011Q2

REPORT INFORMATION
  Report Type: 
  Country: None (occurrence: None)
  Receive Date: 20110505
  Receipt Date: 20110412
  Transmission Date: 20111010
  Serious: Yes (Other)
  Sender: FDA-Public Use
  Company Number: B0716999A

PATIENT
  Sex: Female

DRUGS (2)
  1. KEPPRA [Suspect]
     Dosage: 1500MG TWICE PER DAY
     Route: 048
  2. LAMICTAL [Suspect]
     Dosage: 225MG TWICE PER DAY
     Route: 048

REACTIONS (6)
  - BRADYPHRENIA [None]
  - GAIT DISTURBANCE [None]
  - HEADACHE [None]
  - BALANCE DISORDER [None]
  - HYPERREFLEXIA [None]
  - DYSARTHRIA [None]
